FAERS Safety Report 16318976 (Version 1)
Quarter: 2019Q2

REPORT INFORMATION
  Report Type: Report from Study
  Country: US (occurrence: US)
  Receive Date: 20190516
  Receipt Date: 20190516
  Transmission Date: 20190711
  Serious: Yes (Other)
  Sender: FDA-Public Use
  Company Number: US-CLOVIS ONCOLOGY-CLO-2019-000728

PATIENT
  Age: 81 Year
  Sex: Female

DRUGS (1)
  1. RUBRACA [Suspect]
     Active Substance: RUCAPARIB CAMSYLATE
     Indication: OVARIAN CANCER
     Dosage: 500 MG, BID
     Route: 048
     Dates: start: 20190408, end: 201904

REACTIONS (12)
  - Thrombocytopenia [Unknown]
  - Insomnia [Not Recovered/Not Resolved]
  - Dyspepsia [Recovered/Resolved]
  - Arthritis [Unknown]
  - Fatigue [Unknown]
  - Blood creatinine increased [Unknown]
  - Ulcer [Unknown]
  - Dyspnoea exertional [Unknown]
  - Neuropathy peripheral [Unknown]
  - Muscular weakness [Unknown]
  - Urinary incontinence [Unknown]
  - Anaemia [Unknown]

NARRATIVE: CASE EVENT DATE: 201904
